FAERS Safety Report 15196325 (Version 3)
Quarter: 2018Q4

REPORT INFORMATION
  Report Type: Spontaneous
  Country: US (occurrence: US)
  Receive Date: 20180725
  Receipt Date: 20181206
  Transmission Date: 20190204
  Serious: Yes (Hospitalization, Other)
  Sender: FDA-Public Use
  Company Number: US-PFIZER INC-2018294886

PATIENT
  Age: 11 Month
  Sex: Male
  Weight: 9 kg

DRUGS (2)
  1. AMINOPHYLLINE. [Suspect]
     Active Substance: AMINOPHYLLINE
     Indication: BRONCHITIS
     Dosage: 28 MG/KG, UNK (STAT)
     Route: 030
  2. AMINOPHYLLINE. [Suspect]
     Active Substance: AMINOPHYLLINE
     Indication: RESPIRATORY DISTRESS
     Dosage: 0.25 G, UNK
     Route: 030

REACTIONS (10)
  - Albuminuria [Recovered/Resolved]
  - Muscle twitching [Recovered/Resolved]
  - Restlessness [Recovered/Resolved]
  - Nausea [Recovered/Resolved]
  - Facial paralysis [Recovered/Resolved]
  - Seizure [Recovered/Resolved]
  - Cyanosis [Recovered/Resolved]
  - Toxicity to various agents [Recovered/Resolved]
  - Crying [Recovered/Resolved]
  - Incorrect route of product administration [Unknown]
